FAERS Safety Report 6148310-4 (Version None)
Quarter: 2009Q2

REPORT INFORMATION
  Report Type: 
  Country: None (occurrence: None)
  Receive Date: 20090406
  Receipt Date: 20090330
  Transmission Date: 20091009
  Serious: Yes (Hospitalization)
  Sender: FDA-Public Use
  Company Number: FABR-1000744

PATIENT
  Age: 59 Year
  Sex: Male
  Weight: 79.8 kg

DRUGS (1)
  1. FABRAZYME [Suspect]
     Indication: FABRY'S DISEASE
     Dosage: 70 MG, Q2W; INTRAVENOUS
     Route: 042
     Dates: start: 20061220

REACTIONS (3)
  - DIZZINESS [None]
  - HYPOTENSION [None]
  - SYNCOPE [None]
